FAERS Safety Report 7895704-2 (Version None)
Quarter: 2011Q4

REPORT INFORMATION
  Report Type: 
  Country: None (occurrence: None)
  Receive Date: 20111106
  Receipt Date: 20110830
  Transmission Date: 20120403
  Serious: No
  Sender: FDA-Public Use
  Company Number: US-AMGEN-USASP2011044505

PATIENT
  Age: 46 Year
  Sex: Male

DRUGS (2)
  1. TEKTURNA [Concomitant]
     Dosage: 150 MG, UNK
  2. ENBREL [Suspect]
     Indication: PRODUCT USED FOR UNKNOWN INDICATION
     Dosage: 50 MG, QWK
     Route: 058

REACTIONS (2)
  - PAIN IN EXTREMITY [None]
  - INJECTION SITE PAIN [None]
